FAERS Safety Report 8888535 (Version 2)
Quarter: 2012Q4

REPORT INFORMATION
  Report Type: 
  Country: IE (occurrence: IE)
  Receive Date: 20121106
  Receipt Date: 20121203
  Transmission Date: 20130627
  Serious: Yes (Other)
  Sender: FDA-Public Use
  Company Number: IE-BAXTER-2012BAX022220

PATIENT
  Age: 77 Year
  Sex: Female

DRUGS (1)
  1. KIOVIG [Suspect]
     Indication: BLOOD DISORDER NOS
     Route: 042
     Dates: start: 20120911, end: 20120911

REACTIONS (4)
  - Pyrexia [Recovered/Resolved]
  - Chills [Recovered/Resolved]
  - Wheezing [Recovered/Resolved]
  - Malaise [Recovered/Resolved]
